FAERS Safety Report 25152747 (Version 2)
Quarter: 2025Q2

REPORT INFORMATION
  Report Type: Report from Study
  Country: CA (occurrence: CA)
  Receive Date: 20250403
  Receipt Date: 20250511
  Transmission Date: 20250717
  Serious: Yes (Death, Hospitalization, Other)
  Sender: ABBVIE
  Company Number: CA-ABBVIE-6182820

PATIENT
  Age: 88 Year
  Sex: Male

DRUGS (10)
  1. LUPRON DEPOT [Suspect]
     Active Substance: LEUPROLIDE ACETATE
     Indication: Prostate cancer
     Dosage: FORM STRENGTH: 22.5 MILLIGRAMS
     Route: 030
     Dates: start: 20231020
  2. ASPIRIN [Concomitant]
     Active Substance: ASPIRIN
     Indication: Product used for unknown indication
     Route: 048
  3. LIPITOR [Concomitant]
     Active Substance: ATORVASTATIN CALCIUM
     Indication: Product used for unknown indication
     Route: 048
  4. EMPAGLIFLOZIN [Concomitant]
     Active Substance: EMPAGLIFLOZIN
     Indication: Product used for unknown indication
     Route: 048
  5. LASIX [Concomitant]
     Active Substance: FUROSEMIDE
     Indication: Product used for unknown indication
     Route: 048
  6. LEVOFLOXACIN [Concomitant]
     Active Substance: LEVOFLOXACIN
     Indication: Product used for unknown indication
     Route: 048
  7. SPIRONOLACTONE [Concomitant]
     Active Substance: SPIRONOLACTONE
     Indication: Product used for unknown indication
     Route: 048
  8. LUPRON DEPOT [Concomitant]
     Active Substance: LEUPROLIDE ACETATE
     Indication: Product used for unknown indication
  9. BETAMETHASONE [Concomitant]
     Active Substance: BETAMETHASONE
     Indication: Product used for unknown indication
  10. HYDROMORPHONE [Concomitant]
     Active Substance: HYDROMORPHONE
     Indication: Product used for unknown indication
     Route: 048

REACTIONS (29)
  - Cardiac failure [Fatal]
  - Dyspnoea [Recovered/Resolved]
  - Anxiety [Unknown]
  - Asthenia [Unknown]
  - Depressed mood [Unknown]
  - Depression [Unknown]
  - Poor quality sleep [Unknown]
  - Prostatic specific antigen increased [Unknown]
  - Systolic dysfunction [Unknown]
  - Mitral valve incompetence [Unknown]
  - Pulmonary hypertension [Unknown]
  - Prostate cancer metastatic [Fatal]
  - Left ventricular dysfunction [Unknown]
  - Pleural effusion [Unknown]
  - Aortic valve sclerosis [Unknown]
  - Adverse drug reaction [Unknown]
  - Cardiac failure congestive [Unknown]
  - Cardiac valve disease [Unknown]
  - Pulmonary oedema [Unknown]
  - Atelectasis [Unknown]
  - Pleural effusion [Unknown]
  - Diuretic therapy [Unknown]
  - Troponin increased [Unknown]
  - Arrhythmia induced cardiomyopathy [Unknown]
  - Viral cardiomyopathy [Unknown]
  - Cardiac disorder [Unknown]
  - Panic attack [Unknown]
  - Lung consolidation [Unknown]
  - Cardiac failure [Recovered/Resolved]

NARRATIVE: CASE EVENT DATE: 20250301
